FAERS Safety Report 12656381 (Version 1)
Quarter: 2016Q3

REPORT INFORMATION
  Report Type: Spontaneous
  Country: US (occurrence: US)
  Receive Date: 20160816
  Receipt Date: 20160816
  Transmission Date: 20161109
  Serious: No
  Sender: FDA-Public Use
  Company Number: US-PERRIGO-15US009096

PATIENT
  Age: 57 Year
  Sex: Female
  Weight: 87.98 kg

DRUGS (2)
  1. CHEMOTHERAPEUTICS [Concomitant]
     Active Substance: UNSPECIFIED INGREDIENT
     Indication: OVARIAN CANCER
     Dosage: UNK
     Route: 065
     Dates: start: 2010
  2. LORATADINE. [Suspect]
     Active Substance: LORATADINE
     Indication: MYALGIA
     Dosage: 10 MG, QD
     Route: 048
     Dates: start: 20150826, end: 20150830

REACTIONS (2)
  - Off label use [Recovered/Resolved]
  - Therapeutic response unexpected [Recovered/Resolved]

NARRATIVE: CASE EVENT DATE: 20150826
